FAERS Safety Report 9110344 (Version 1)
Quarter: 2013Q1

REPORT INFORMATION
  Report Type: Spontaneous
  Country: US (occurrence: US)
  Receive Date: 20130222
  Receipt Date: 20130222
  Transmission Date: 20140127
  Serious: Yes (Other)
  Sender: FDA-Public Use
  Company Number: US-ELI_LILLY_AND_COMPANY-US201302003309

PATIENT
  Age: 68 Year
  Sex: Female
  Weight: 85.71 kg

DRUGS (7)
  1. BYDUREON [Suspect]
     Indication: TYPE 2 DIABETES MELLITUS
     Dosage: 2 MG, WEEKLY (1/W)
     Route: 058
     Dates: start: 20121218, end: 20130113
  2. GLUMETZA [Concomitant]
     Indication: TYPE 2 DIABETES MELLITUS
     Dosage: 1 DF, QD
     Route: 048
     Dates: start: 20121218
  3. METFORMIN [Concomitant]
     Indication: TYPE 2 DIABETES MELLITUS
     Dosage: 850 MG, TID
     Route: 048
  4. ONGLYZA [Concomitant]
     Indication: TYPE 2 DIABETES MELLITUS
     Dosage: 5 MG, QD
     Route: 048
  5. GLIMEPIRIDE [Concomitant]
     Indication: TYPE 2 DIABETES MELLITUS
     Dosage: 4 MG, QD
     Route: 048
  6. GLIMEPIRIDE [Concomitant]
     Dosage: 2 MG, QD
     Route: 048
  7. VALIUM [Concomitant]
     Indication: DEPRESSION
     Dosage: 2 MG, PRN
     Route: 048

REACTIONS (12)
  - Depression suicidal [Recovered/Resolved]
  - Cardiac flutter [Recovered/Resolved]
  - Blood glucose increased [Recovered/Resolved]
  - Feeling abnormal [Recovered/Resolved]
  - Weight decreased [Not Recovered/Not Resolved]
  - Tremor [Unknown]
  - Dizziness [Recovered/Resolved]
  - Injection site nodule [Not Recovered/Not Resolved]
  - Injection site discolouration [Not Recovered/Not Resolved]
  - Blood glucose decreased [Recovering/Resolving]
  - Asthenia [Unknown]
  - Drug ineffective [Recovered/Resolved]
